FAERS Safety Report 9673345 (Version 1)
Quarter: 2013Q4

REPORT INFORMATION
  Report Type: Spontaneous
  Country: US (occurrence: US)
  Receive Date: 20131106
  Receipt Date: 20131106
  Transmission Date: 20140711
  Serious: No
  Sender: FDA-Public Use
  Company Number: US-AMGEN-USASP2013071850

PATIENT
  Age: 67 Year
  Sex: Female
  Weight: 74.83 kg

DRUGS (5)
  1. ENBREL [Suspect]
     Indication: RHEUMATOID ARTHRITIS
     Dosage: UNK
     Route: 065
     Dates: start: 2012
  2. XELJANZ [Suspect]
     Indication: RHEUMATOID ARTHRITIS
     Dosage: 5 MG, BID
     Route: 065
     Dates: start: 20131007
  3. HUMIRA [Suspect]
     Indication: RHEUMATOID ARTHRITIS
     Dosage: UNK
     Route: 065
     Dates: start: 2013, end: 2013
  4. PREDNISONE [Concomitant]
     Indication: BLOOD DISORDER
     Dosage: UNK
  5. HYDROCODONE [Concomitant]
     Indication: CYST
     Dosage: 325 MG, QD

REACTIONS (9)
  - Drug ineffective [Unknown]
  - Oral pain [Unknown]
  - Tooth disorder [Unknown]
  - Cough [Unknown]
  - Oropharyngeal pain [Unknown]
  - Malaise [Unknown]
  - Head discomfort [Unknown]
  - Nasopharyngitis [Unknown]
  - Sinusitis [Unknown]
